FAERS Safety Report 9780334 (Version 1)
Quarter: 2013Q4

REPORT INFORMATION
  Report Type: Report from Study
  Country: DE (occurrence: DE)
  Receive Date: 20131224
  Receipt Date: 20131224
  Transmission Date: 20140711
  Serious: Yes (Hospitalization)
  Sender: FDA-Public Use
  Company Number: DE-ROCHE-1317503

PATIENT
  Sex: 0

DRUGS (4)
  1. PEG-INTERFERON ALFA 2A [Suspect]
     Indication: CHRONIC HEPATITIS C
     Route: 065
  2. PEG-INTERFERON ALFA 2A [Suspect]
     Route: 065
  3. RIBAVIRIN [Suspect]
     Indication: CHRONIC HEPATITIS C
     Dosage: 200-1000 MG
     Route: 048
  4. TELAPREVIR [Suspect]
     Indication: CHRONIC HEPATITIS C
     Route: 065

REACTIONS (9)
  - Gastroenteritis norovirus [Unknown]
  - Cerebrovascular accident [Unknown]
  - Anaemia [Unknown]
  - Hypertensive crisis [Unknown]
  - Pruritus [Unknown]
  - Rash [Unknown]
  - Anorectal discomfort [Unknown]
  - Anal ulcer [Unknown]
  - Diarrhoea [Unknown]
